FAERS Safety Report 24978688 (Version 2)
Quarter: 2025Q1

REPORT INFORMATION
  Report Type: Report from Study
  Country: DZ (occurrence: DZ)
  Receive Date: 20250218
  Receipt Date: 20250307
  Transmission Date: 20250409
  Serious: Yes (Death, Other)
  Sender: EMD SERONO INC
  Company Number: DZ-Merck Healthcare KGaA-2025007251

PATIENT
  Sex: Male

DRUGS (1)
  1. REBIF [Suspect]
     Active Substance: INTERFERON BETA-1A
     Indication: Multiple sclerosis

REACTIONS (2)
  - Premature baby death [Fatal]
  - Foetal exposure during pregnancy [Recovered/Resolved]
